FAERS Safety Report 5847169-X (Version None)
Quarter: 2008Q3

REPORT INFORMATION
  Report Type: 
  Country: None (occurrence: None)
  Receive Date: 20080815
  Receipt Date: 20080808
  Transmission Date: 20090109
  Serious: Yes (Disabling)
  Sender: FDA-Public Use
  Company Number: PHHY2008CH17298

PATIENT
  Age: 56 Year
  Sex: Female

DRUGS (9)
  1. CYCLOSPORINE [Suspect]
     Indication: STEM CELL TRANSPLANT
     Route: 048
  2. PREDNISONE TAB [Concomitant]
     Dosage: UNK
  3. NEURONTIN [Concomitant]
     Dosage: UNK
  4. REMERON [Concomitant]
     Dosage: UNK
  5. VALTREX [Concomitant]
     Dosage: UNK
  6. BACTRIM [Concomitant]
  7. DIFLUCAN [Concomitant]
     Dosage: UNK
  8. RAMIPRIL [Concomitant]
     Dosage: UNK
  9. NEXIUM [Concomitant]
     Dosage: UNK

REACTIONS (3)
  - CYANOPSIA [None]
  - OPTIC ATROPHY [None]
  - VISUAL ACUITY REDUCED [None]
